FAERS Safety Report 18633953 (Version 2)
Quarter: 2020Q4

REPORT INFORMATION
  Report Type: Spontaneous
  Country: US (occurrence: US)
  Receive Date: 20201218
  Receipt Date: 20201229
  Transmission Date: 20210114
  Serious: No
  Sender: FDA-Public Use
  Company Number: US-HORIZON-2020HZN02390

PATIENT
  Age: 54 Year
  Sex: Female

DRUGS (1)
  1. TEPEZZA [Suspect]
     Active Substance: TEPROTUMUMAB-TRBW
     Indication: ENDOCRINE OPHTHALMOPATHY
     Dosage: START TEPEZZA A 2ND TIME
     Route: 050
     Dates: start: 20200204, end: 20200706

REACTIONS (3)
  - Symptom recurrence [Not Recovered/Not Resolved]
  - Diplopia [Not Recovered/Not Resolved]
  - Exophthalmos [Not Recovered/Not Resolved]

NARRATIVE: CASE EVENT DATE: 202011
